FAERS Safety Report 21782768 (Version 1)
Quarter: 2022Q4

REPORT INFORMATION
  Report Type: Spontaneous
  Country: US (occurrence: US)
  Receive Date: 20221227
  Receipt Date: 20221227
  Transmission Date: 20230113
  Serious: No
  Sender: FDA-Public Use
  Company Number: US-PFIZER INC-202201384151

PATIENT
  Age: 79 Year
  Sex: Female
  Weight: 93.44 kg

DRUGS (3)
  1. PAXLOVID [Interacting]
     Active Substance: NIRMATRELVIR\RITONAVIR
     Indication: COVID-19 treatment
     Dosage: 300 OF THE NIRMATRAVIR AND 100MG OF THE RITONAVIR/3 IN THE MORNING AND 3 AT NIGHT
     Route: 048
     Dates: start: 20221217
  2. NIFEDIPINE [Interacting]
     Active Substance: NIFEDIPINE
     Indication: Prinzmetal angina
     Dosage: 60 MG, 1X/DAY (AT NIGHT)
     Route: 048
     Dates: end: 20221218
  3. ACETYLCYSTEINE [Concomitant]
     Active Substance: ACETYLCYSTEINE
     Dosage: 600 MG, 1X/DAY
     Dates: start: 20221217

REACTIONS (3)
  - Presyncope [Unknown]
  - Hypotension [Recovering/Resolving]
  - Drug interaction [Unknown]

NARRATIVE: CASE EVENT DATE: 20221201
